FAERS Safety Report 11119555 (Version 1)
Quarter: 2015Q2

REPORT INFORMATION
  Report Type: Spontaneous
  Country: US (occurrence: None)
  Receive Date: 20150515
  Receipt Date: 20150515
  Transmission Date: 20150821
  Serious: No
  Sender: FDA-Public Use
  Company Number: None

PATIENT
  Age: 62 Year
  Sex: Female
  Weight: 79.38 kg

DRUGS (7)
  1. OMPERAZOLE [Concomitant]
     Active Substance: OMEPRAZOLE
  2. B-12? [Concomitant]
  3. GABPENTIN [Concomitant]
  4. ARTHRITIS PAIN [Concomitant]
     Active Substance: ACETAMINOPHEN
  5. METRONIDAZOLE. [Suspect]
     Active Substance: METRONIDAZOLE
     Indication: GASTROINTESTINAL BACTERIAL INFECTION
     Dosage: 3 PILLS, 1 MORNING, SUPPL?? BEDTIME, BY MOUTH W/FOOD OR WITHOUT
     Route: 048
     Dates: start: 20150408, end: 20150425
  6. L-THROXINE [Concomitant]
  7. ATORVASTATIN [Concomitant]
     Active Substance: ATORVASTATIN

REACTIONS (2)
  - Helicobacter infection [None]
  - Abdominal pain upper [None]

NARRATIVE: CASE EVENT DATE: 20150408
